FAERS Safety Report 7436707-1 (Version None)
Quarter: 2011Q2

REPORT INFORMATION
  Report Type: 
  Country: None (occurrence: None)
  Receive Date: 20110415
  Receipt Date: 20110407
  Transmission Date: 20111010
  Serious: Yes (Other)
  Sender: FDA-Public Use
  Company Number: 2011SP001004

PATIENT
  Sex: Male
  Weight: 80.7 kg

DRUGS (3)
  1. PULMICORT ALBUTEROL [Concomitant]
  2. BROVANA [Suspect]
     Indication: BRONCHITIS CHRONIC
     Dosage: 15 UG/2ML;BID;INHALATION
     Route: 055
     Dates: start: 20100101
  3. VITAMIN D [Concomitant]

REACTIONS (3)
  - BRONCHITIS CHRONIC [None]
  - CAROTID ARTERY OCCLUSION [None]
  - CONDITION AGGRAVATED [None]
